FAERS Safety Report 16575055 (Version 1)
Quarter: 2019Q3

REPORT INFORMATION
  Report Type: Spontaneous
  Country: US (occurrence: US)
  Receive Date: 20190715
  Receipt Date: 20190715
  Transmission Date: 20191004
  Serious: No
  Sender: FDA-Public Use
  Company Number: PHEH2019US028767

PATIENT
  Sex: Female

DRUGS (1)
  1. BIMATOPROST. [Suspect]
     Active Substance: BIMATOPROST
     Indication: PRODUCT USED FOR UNKNOWN INDICATION
     Dosage: UNK (TWO TIMES)
     Route: 065

REACTIONS (4)
  - Eyelid thickening [Unknown]
  - Erythema of eyelid [Unknown]
  - Eyelid exfoliation [Unknown]
  - Dermatitis contact [Unknown]
